FAERS Safety Report 25166120 (Version 3)
Quarter: 2025Q4

REPORT INFORMATION
  Report Type: Report from Study
  Country: US (occurrence: US)
  Receive Date: 20250407
  Receipt Date: 20251010
  Transmission Date: 20260118
  Serious: Yes (Other)
  Sender: TAKEDA
  Company Number: US-TAKEDA-2025TUS032336

PATIENT
  Age: 33 Year
  Sex: Male

DRUGS (2)
  1. VEDOLIZUMAB [Suspect]
     Active Substance: VEDOLIZUMAB
     Indication: Colitis ulcerative
     Dosage: 108 MILLIGRAM, Q2WEEKS
  2. VEDOLIZUMAB [Suspect]
     Active Substance: VEDOLIZUMAB

REACTIONS (5)
  - Haematochezia [Unknown]
  - Thrombosis [Unknown]
  - Mucous stools [Unknown]
  - Injection site extravasation [Unknown]
  - Back pain [Unknown]
